FAERS Safety Report 6624811-7 (Version None)
Quarter: 2010Q1

REPORT INFORMATION
  Report Type: 
  Country: None (occurrence: None)
  Receive Date: 20100223
  Receipt Date: 20100104
  Transmission Date: 20100710
  Serious: No
  Sender: FDA-Public Use
  Company Number: 005345

PATIENT
  Sex: Female
  Weight: 69 kg

DRUGS (8)
  1. CIMZIA [Suspect]
     Indication: CROHN'S DISEASE
     Dosage: 400 MG SUBCUTANEOUS
     Route: 058
     Dates: start: 20090101, end: 20091223
  2. SULFASALAZINE [Concomitant]
  3. ASACOL [Concomitant]
  4. NEXIUM [Concomitant]
  5. CYMBALTA [Concomitant]
  6. INDERAL [Concomitant]
  7. TRAZODONE HCL [Concomitant]
  8. ANTIBIOTICS [Concomitant]

REACTIONS (1)
  - WHITE BLOOD CELL COUNT DECREASED [None]
